FAERS Safety Report 4360288-2 (Version None)
Quarter: 2004Q2

REPORT INFORMATION
  Report Type: 
  Country: None (occurrence: None)
  Receive Date: 20040519
  Receipt Date: 20040426
  Transmission Date: 20050107
  Serious: Yes (Disabling)
  Sender: FDA-Public Use
  Company Number: US-BRISTOL-MYERS SQUIBB COMPANY-12571493

PATIENT
  Age: 84 Year
  Sex: Female
  Weight: 57 kg

DRUGS (8)
  1. ABILIFY [Suspect]
     Indication: DEMENTIA ALZHEIMER'S TYPE
     Route: 048
     Dates: start: 20040225, end: 20040318
  2. LEXAPRO [Concomitant]
     Dates: start: 20040206
  3. LOPRESSOR [Concomitant]
     Dates: start: 20020916
  4. DILANTIN [Concomitant]
     Dates: start: 20040202
  5. LIPITOR [Concomitant]
     Dates: start: 20020906
  6. LASIX [Concomitant]
     Dates: start: 20020916
  7. TRAZODONE HCL [Concomitant]
     Dates: start: 20021207
  8. ADVAIR DISKUS 100/50 [Concomitant]
     Dates: start: 20020916

REACTIONS (2)
  - DEEP VEIN THROMBOSIS [None]
  - THROMBOSIS [None]
